FAERS Safety Report 7138829-1 (Version None)
Quarter: 2010Q4

REPORT INFORMATION
  Report Type: 
  Country: None (occurrence: None)
  Receive Date: 20101206
  Receipt Date: 20101203
  Transmission Date: 20110411
  Serious: Yes (Death)
  Sender: FDA-Public Use
  Company Number: GB-TEVA-258224ISR

PATIENT
  Age: 72 Year
  Sex: Male

DRUGS (4)
  1. DILTIAZEM [Suspect]
     Indication: PAIN
  2. ISOSORBIDE DINITRATE [Suspect]
     Indication: PAIN
  3. NIFEDIPINE [Suspect]
     Indication: PAIN
  4. RANITIDINE [Suspect]
     Indication: PAIN

REACTIONS (8)
  - ACIDOSIS [None]
  - CARDIOGENIC SHOCK [None]
  - HEPATITIS TOXIC [None]
  - HYPERKALAEMIA [None]
  - NEPHROPATHY TOXIC [None]
  - PULMONARY OEDEMA [None]
  - RENAL FAILURE ACUTE [None]
  - URTICARIA [None]
